FAERS Safety Report 25915531 (Version 1)
Quarter: 2025Q4

REPORT INFORMATION
  Report Type: Spontaneous
  Country: EU (occurrence: EU)
  Receive Date: 20251013
  Receipt Date: 20251013
  Transmission Date: 20260117
  Serious: Yes (Other)
  Sender: SANDOZ
  Company Number: EU-TEVA-VS-3376083

PATIENT
  Age: 60 Year
  Sex: Female

DRUGS (1)
  1. METHOTREXATE [Suspect]
     Active Substance: METHOTREXATE
     Indication: Product used for unknown indication
     Dosage: METHOTREXATE TEVA CONCENTRATE FOR INFUSION
     Route: 065

REACTIONS (4)
  - Cerebral infarction [Unknown]
  - Myocarditis [Unknown]
  - Weight decreased [Unknown]
  - Osteoporosis [Unknown]
